FAERS Safety Report 9344491 (Version 1)
Quarter: 2013Q2

REPORT INFORMATION
  Report Type: Spontaneous
  Country: CA (occurrence: CA)
  Receive Date: 20130612
  Receipt Date: 20130612
  Transmission Date: 20140414
  Serious: Yes (Hospitalization)
  Sender: FDA-Public Use
  Company Number: CA-ROXANE LABORATORIES, INC.-2013-RO-00922RO

PATIENT
  Age: 80 Year
  Sex: Female

DRUGS (4)
  1. MORPHINE [Suspect]
     Indication: PAIN
  2. HYDROMORPHONE [Suspect]
     Indication: BREAKTHROUGH PAIN
  3. LONARID [Suspect]
     Indication: PAIN
  4. HYDROMORPHONE [Suspect]
     Indication: PAIN

REACTIONS (1)
  - Colonic pseudo-obstruction [Recovered/Resolved]
